FAERS Safety Report 6134042-5 (Version None)
Quarter: 2009Q1

REPORT INFORMATION
  Report Type: 
  Country: None (occurrence: None)
  Receive Date: 20090326
  Receipt Date: 20090323
  Transmission Date: 20090719
  Serious: Yes (Disabling)
  Sender: FDA-Public Use
  Company Number: US-B.I. PHARMACEUTICALS,INC./RIDGEFIELD-2009-BP-03572BP

PATIENT
  Age: 80 Year
  Sex: Male

DRUGS (5)
  1. COMBIVENT [Suspect]
     Indication: CHRONIC OBSTRUCTIVE PULMONARY DISEASE
     Dosage: 15PUF
     Route: 055
     Dates: start: 20030101
  2. MIRAPEX [Suspect]
     Indication: RESTLESS LEGS SYNDROME
     Dosage: .375MG
     Route: 048
     Dates: start: 20070101
  3. ADVAIR HFA [Concomitant]
  4. FLUTICASONE PROPIONATE [Concomitant]
  5. LORAZEPAM [Concomitant]

REACTIONS (4)
  - NEUROPATHY PERIPHERAL [None]
  - RESTLESS LEGS SYNDROME [None]
  - RESTLESSNESS [None]
  - SOMNOLENCE [None]
